FAERS Safety Report 20374320 (Version 1)
Quarter: 2022Q1

REPORT INFORMATION
  Report Type: Spontaneous
  Country: US (occurrence: US)
  Receive Date: 20220125
  Receipt Date: 20220125
  Transmission Date: 20220423
  Serious: Yes (Life-Threatening, Hospitalization, Other)
  Sender: FDA-Public Use
  Company Number: US-ELI_LILLY_AND_COMPANY-US202201007514

PATIENT
  Sex: Male

DRUGS (1)
  1. HUMALOG [Suspect]
     Active Substance: INSULIN LISPRO
     Indication: Diabetes mellitus
     Dosage: UNK UNK, UNKNOWN
     Route: 065

REACTIONS (13)
  - Cardiac arrest [Unknown]
  - Myocardial infarction [Unknown]
  - Cardiac failure congestive [Unknown]
  - Pneumonia [Unknown]
  - Neuropathy peripheral [Unknown]
  - Hypertension [Unknown]
  - Renal failure [Unknown]
  - Gait inability [Unknown]
  - COVID-19 [Unknown]
  - Delusional perception [Unknown]
  - Renal impairment [Unknown]
  - Respiration abnormal [Unknown]
  - Postoperative wound complication [Unknown]
